FAERS Safety Report 19482470 (Version 1)
Quarter: 2021Q3

REPORT INFORMATION
  Report Type: Spontaneous
  Country: NL (occurrence: NL)
  Receive Date: 20210701
  Receipt Date: 20210701
  Transmission Date: 20211014
  Serious: Yes (Other)
  Sender: FDA-Public Use
  Company Number: NL-SA-2021SA215307

PATIENT

DRUGS (2)
  1. LEMTRADA [Suspect]
     Active Substance: ALEMTUZUMAB
     Indication: PRODUCT USED FOR UNKNOWN INDICATION
     Dosage: UNK
     Route: 065
     Dates: start: 20210609, end: 20210609
  2. LEMTRADA [Suspect]
     Active Substance: ALEMTUZUMAB
     Dosage: UNK
     Route: 065
     Dates: start: 20210610, end: 20210611

REACTIONS (6)
  - Thrombocytopenia [Recovered/Resolved]
  - Vomiting [Recovered/Resolved]
  - Heart rate decreased [Recovered/Resolved]
  - Abdominal discomfort [Recovered/Resolved]
  - Blood creatine phosphokinase increased [Recovered/Resolved]
  - Hypotension [Recovered/Resolved]

NARRATIVE: CASE EVENT DATE: 20210609
